FAERS Safety Report 16889156 (Version 1)
Quarter: 2019Q4

REPORT INFORMATION
  Report Type: Spontaneous
  Country: NO (occurrence: NO)
  Receive Date: 20191007
  Receipt Date: 20191007
  Transmission Date: 20200122
  Serious: Yes (Hospitalization)
  Sender: FDA-Public Use
  Company Number: NO-ROCHE-2424131

PATIENT
  Age: 19 Year
  Sex: Female

DRUGS (2)
  1. ORFIRIL [Suspect]
     Active Substance: VALPROATE SODIUM
     Indication: EPILEPSY
     Route: 048
  2. RIVOTRIL [Suspect]
     Active Substance: CLONAZEPAM
     Indication: EPILEPSY
     Route: 065

REACTIONS (3)
  - Respiratory failure [Recovered/Resolved]
  - Neurotoxicity [Recovered/Resolved]
  - Coma [Recovered/Resolved]
